FAERS Safety Report 8352121-9 (Version None)
Quarter: 2012Q2

REPORT INFORMATION
  Report Type: 
  Country: None (occurrence: None)
  Receive Date: 20120511
  Receipt Date: 20120501
  Transmission Date: 20120825
  Serious: Yes (Other)
  Sender: FDA-Public Use
  Company Number: CA-JNJFOC-20120502005

PATIENT
  Sex: Male
  Weight: 50 kg

DRUGS (1)
  1. REMICADE [Suspect]
     Indication: CROHN'S DISEASE
     Route: 042
     Dates: start: 20110525, end: 20120215

REACTIONS (2)
  - INCISION SITE INFECTION [None]
  - ILEOSTOMY CLOSURE [None]
